FAERS Safety Report 6014071-2 (Version None)
Quarter: 2008Q4

REPORT INFORMATION
  Report Type: 
  Country: None (occurrence: None)
  Receive Date: 20081219
  Receipt Date: 20071120
  Transmission Date: 20090506
  Serious: No
  Sender: FDA-Public Use
  Company Number: A0695382A

PATIENT
  Age: 83 Year
  Sex: Male

DRUGS (5)
  1. AVODART [Suspect]
     Indication: BENIGN PROSTATIC HYPERPLASIA
     Dosage: 1CAPL PER DAY
     Route: 048
     Dates: start: 20070601
  2. LISINOPRIL [Concomitant]
  3. NAPROXEN [Concomitant]
  4. ACIPHEX [Concomitant]
  5. MULTI-VITAMINS [Concomitant]

REACTIONS (1)
  - FEELING ABNORMAL [None]
